FAERS Safety Report 9196520 (Version 1)
Quarter: 2013Q1

REPORT INFORMATION
  Report Type: Spontaneous
  Country: US (occurrence: US)
  Receive Date: 20130328
  Receipt Date: 20130328
  Transmission Date: 20140127
  Serious: No
  Sender: FDA-Public Use
  Company Number: US-PFIZER INC-2013099361

PATIENT
  Sex: Female

DRUGS (2)
  1. PRISTIQ [Suspect]
     Indication: DEPRESSION
     Dosage: 100 MG, UNK
  2. PRISTIQ [Suspect]
     Dosage: 50MG, UNK

REACTIONS (2)
  - Dry mouth [Unknown]
  - Incorrect dose administered [Unknown]
